FAERS Safety Report 20497527 (Version 1)
Quarter: 2022Q1

REPORT INFORMATION
  Report Type: Spontaneous
  Country: RU (occurrence: RU)
  Receive Date: 20220221
  Receipt Date: 20220221
  Transmission Date: 20220423
  Serious: Yes (Other)
  Sender: FDA-Public Use
  Company Number: RU-PFIZER INC-202200231244

PATIENT
  Age: 11 Year
  Sex: Male

DRUGS (2)
  1. ENBREL [Suspect]
     Active Substance: ETANERCEPT
     Indication: Combined immunodeficiency
     Dosage: 0.8 MG/KG, WEEKLY
     Route: 065
  2. ENBREL [Suspect]
     Active Substance: ETANERCEPT
     Indication: Segmented hyalinising vasculitis
     Dosage: UNK UNK, UNK
     Route: 065

REACTIONS (3)
  - Cytopenia [Recovering/Resolving]
  - Coombs test positive [Recovering/Resolving]
  - Off label use [Unknown]
